FAERS Safety Report 6578309-5 (Version None)
Quarter: 2010Q1

REPORT INFORMATION
  Report Type: 
  Country: None (occurrence: None)
  Receive Date: 20100211
  Receipt Date: 20100208
  Transmission Date: 20100710
  Serious: Yes (Death)
  Sender: FDA-Public Use
  Company Number: D0066288A

PATIENT
  Sex: Male

DRUGS (1)
  1. ESKAZOLE [Suspect]
     Route: 065

REACTIONS (2)
  - DEATH [None]
  - POLYNEUROPATHY [None]
